FAERS Safety Report 16740613 (Version 1)
Quarter: 2019Q3

REPORT INFORMATION
  Report Type: Other
  Country: NO (occurrence: NO)
  Receive Date: 20190826
  Receipt Date: 20190826
  Transmission Date: 20191005
  Serious: Yes (Other)
  Sender: FDA-Public Use
  Company Number: NO-HQ SPECIALTY-NO-2019INT000225

PATIENT
  Sex: Female

DRUGS (1)
  1. DEXMEDETOMIDINE HYDROCHLORIDE. [Suspect]
     Active Substance: DEXMEDETOMIDINE HYDROCHLORIDE
     Indication: SEDATION
     Dosage: DOSE ADMINISTERED IS NOT STATED IN REPORT, BUT IT IS NOTED THAT IT WAS A SMALL DOSE
     Route: 045
     Dates: start: 20190521, end: 20190521

REACTIONS (4)
  - Bradycardia [Recovered/Resolved]
  - Product administered to patient of inappropriate age [Unknown]
  - Oxygen saturation decreased [Recovered/Resolved]
  - Product use issue [Unknown]

NARRATIVE: CASE EVENT DATE: 20190521
